FAERS Safety Report 4951967-4 (Version None)
Quarter: 2006Q1

REPORT INFORMATION
  Report Type: 
  Country: None (occurrence: None)
  Receive Date: 20060323
  Receipt Date: 20060316
  Transmission Date: 20060701
  Serious: Yes (Life-Threatening)
  Sender: FDA-Public Use
  Company Number: AU-ROCHE-440705

PATIENT
  Age: 79 Year
  Sex: Female
  Weight: 80 kg

DRUGS (1)
  1. ROCEPHIN [Suspect]
     Indication: PNEUMONIA
     Dosage: ROUTE REPORTED AS INTRAVENOUS INFUSION.
     Route: 042
     Dates: start: 20051125, end: 20051125

REACTIONS (10)
  - ANGIONEUROTIC OEDEMA [None]
  - BURNING SENSATION [None]
  - DIARRHOEA [None]
  - DYSPNOEA [None]
  - NAUSEA [None]
  - RASH [None]
  - RESPIRATORY RATE INCREASED [None]
  - SWELLING FACE [None]
  - VOMITING [None]
  - WHEEZING [None]
